FAERS Safety Report 7122262-2 (Version None)
Quarter: 2010Q4

REPORT INFORMATION
  Report Type: 
  Country: None (occurrence: None)
  Receive Date: 20101115
  Receipt Date: 20101103
  Transmission Date: 20110411
  Serious: Yes (Life-Threatening, Hospitalization, Other)
  Sender: FDA-Public Use
  Company Number: 2008EU002075

PATIENT
  Age: 72 Year
  Sex: Female
  Weight: 75 kg

DRUGS (10)
  1. PROGRAF [Suspect]
     Dosage: 1 MG, BID, ORAL
     Route: 048
     Dates: start: 20030101
  2. ZYPREXA [Suspect]
     Dosage: 1 DF, UID/QD, ORAL
     Route: 048
     Dates: start: 20080306, end: 20080313
  3. METOHEXAL (METOPROLOL SUCCINATE) [Concomitant]
  4. RAMIPRIL [Concomitant]
  5. ZEFFIX (LAMIVUDINE) [Concomitant]
  6. MAGNETRANS (MAGNESIUM OXIDE) [Concomitant]
  7. GINGIUM (GINKGO BILOBA EXTRACT) [Concomitant]
  8. LEVOTHYROXINE SODIUM [Concomitant]
  9. FLUTIDE (FLUTICASONE PROPIONATE) [Concomitant]
  10. CORVATION (MOLSIDOMINE) [Concomitant]

REACTIONS (6)
  - ANXIETY DISORDER [None]
  - DIZZINESS [None]
  - DRUG INTERACTION [None]
  - HYPERTENSION [None]
  - HYPOTHYROIDISM [None]
  - LONG QT SYNDROME [None]
